FAERS Safety Report 10158135 (Version 1)
Quarter: 2014Q2

REPORT INFORMATION
  Report Type: Spontaneous
  Country: NL (occurrence: NL)
  Receive Date: 20140507
  Receipt Date: 20140507
  Transmission Date: 20141212
  Serious: Yes (Death, Other)
  Sender: FDA-Public Use
  Company Number: NL-AMGEN INC.-NLDSP2012085439

PATIENT
  Age: 56 Year
  Sex: Male

DRUGS (1)
  1. ARANESP [Suspect]
     Indication: ANAEMIA
     Dosage: 500 MUG, Q3WK
     Route: 058
     Dates: start: 20120131, end: 20120411

REACTIONS (2)
  - Death [Fatal]
  - Metastases to spine [Unknown]
